FAERS Safety Report 9675600 (Version 2)
Quarter: 2014Q2

REPORT INFORMATION
  Report Type: Spontaneous
  Country: FR (occurrence: FR)
  Receive Date: 20131107
  Receipt Date: 20140627
  Transmission Date: 20141212
  Serious: Yes (Other)
  Sender: FDA-Public Use
  Company Number: FR-ABBVIE-13P-056-1165418-00

PATIENT
  Age: 50 Year
  Sex: Female

DRUGS (20)
  1. ULTANE [Suspect]
     Indication: GENERAL ANAESTHESIA
     Route: 055
     Dates: start: 20130522, end: 20130522
  2. ULTANE [Suspect]
     Dates: start: 20140403, end: 20140403
  3. CELOCURINE [Suspect]
     Indication: GENERAL ANAESTHESIA
     Route: 042
     Dates: start: 20130522, end: 20130522
  4. CEFUROXIME [Suspect]
     Indication: ANTIBIOTIC PROPHYLAXIS
     Route: 042
     Dates: start: 20130522, end: 20130522
  5. KETAMINE [Suspect]
     Indication: GENERAL ANAESTHESIA
     Route: 042
     Dates: start: 20130522, end: 20130522
  6. KETAMINE [Suspect]
     Dates: start: 20131120, end: 20131120
  7. SUFENTANIL [Suspect]
     Indication: GENERAL ANAESTHESIA
     Route: 042
     Dates: start: 20130522, end: 20130522
  8. SUFENTANIL [Suspect]
     Dates: start: 20140403, end: 20140403
  9. PROPOFOL [Suspect]
     Indication: GENERAL ANAESTHESIA
     Route: 042
     Dates: start: 20130522, end: 20130522
  10. PROPOFOL [Suspect]
     Dates: start: 20131120, end: 20131120
  11. PROPOFOL [Suspect]
     Dates: start: 20140403, end: 20140403
  12. RAPIFEN [Suspect]
     Indication: GENERAL ANAESTHESIA
     Route: 042
     Dates: start: 20130522, end: 20130522
  13. STAGID [Concomitant]
     Indication: PRODUCT USED FOR UNKNOWN INDICATION
  14. PANTOPRAZOLE [Concomitant]
     Indication: PRODUCT USED FOR UNKNOWN INDICATION
  15. JANUVIA [Concomitant]
     Indication: PRODUCT USED FOR UNKNOWN INDICATION
  16. FUROSEMIDE [Concomitant]
     Indication: PRODUCT USED FOR UNKNOWN INDICATION
  17. PREVISCAN [Concomitant]
     Indication: PRODUCT USED FOR UNKNOWN INDICATION
  18. LANTUS [Concomitant]
     Indication: PRODUCT USED FOR UNKNOWN INDICATION
  19. LOPERAMIDE [Concomitant]
     Indication: PRODUCT USED FOR UNKNOWN INDICATION
  20. VALSARTAN [Concomitant]
     Indication: PRODUCT USED FOR UNKNOWN INDICATION

REACTIONS (4)
  - Respiratory distress [Recovered/Resolved]
  - Bronchospasm [Recovered/Resolved]
  - Bronchospasm [Unknown]
  - Bronchial hyperreactivity [Unknown]
